FAERS Safety Report 7819506-8 (Version None)
Quarter: 2011Q4

REPORT INFORMATION
  Report Type: 
  Country: None (occurrence: None)
  Receive Date: 20111018
  Receipt Date: 20110816
  Transmission Date: 20120403
  Serious: No
  Sender: FDA-Public Use
  Company Number: US-ASTRAZENECA-2011SE49136

PATIENT
  Sex: Female

DRUGS (2)
  1. SYMBICORT [Suspect]
     Indication: LUNG DISORDER
     Dosage: 80/4.5 MCG BID
     Route: 055
  2. SEROQUEL [Suspect]
     Route: 048

REACTIONS (3)
  - DRUG DOSE OMISSION [None]
  - INSOMNIA [None]
  - OFF LABEL USE [None]
